FAERS Safety Report 8322886-0 (Version None)
Quarter: 2012Q2

REPORT INFORMATION
  Report Type: 
  Country: None (occurrence: None)
  Receive Date: 20120430
  Receipt Date: 20120416
  Transmission Date: 20120825
  Serious: Yes (Other)
  Sender: FDA-Public Use
  Company Number: CHPA2012US005296

PATIENT
  Sex: Female

DRUGS (2)
  1. EXCEDRIN EXTRA STRENGTH TABLETS [Suspect]
     Indication: PROPHYLAXIS
     Dosage: UNK DF, EVERYDAY SOMTIMES TWICE A DAY
     Route: 048
  2. EXCEDRIN (MIGRAINE) [Concomitant]
     Indication: HEADACHE
     Dosage: UNK, UNK
     Route: 048

REACTIONS (7)
  - ABDOMINAL DISCOMFORT [None]
  - OFF LABEL USE [None]
  - DIZZINESS [None]
  - INCORRECT DRUG ADMINISTRATION DURATION [None]
  - CEREBROVASCULAR ACCIDENT [None]
  - DYSSTASIA [None]
  - THERAPEUTIC RESPONSE UNEXPECTED [None]
